FAERS Safety Report 9214650 (Version 2)
Quarter: 2013Q4

REPORT INFORMATION
  Report Type: Spontaneous
  Country: US (occurrence: US)
  Receive Date: 20130405
  Receipt Date: 20131209
  Transmission Date: 20140711
  Serious: Yes (Other)
  Sender: FDA-Public Use
  Company Number: US-BAYER-2013-040715

PATIENT
  Age: 42 Year
  Sex: Female

DRUGS (6)
  1. YAZ [Suspect]
     Dosage: UNK
     Dates: start: 200808, end: 20090727
  2. YASMIN [Suspect]
     Dosage: UNK
     Dates: start: 200808, end: 20090727
  3. CARAFATE [Concomitant]
     Dosage: 1 GM/10 ML
     Route: 048
     Dates: start: 20090402
  4. OXYCODONE/APAP [Concomitant]
     Dosage: 5/500
     Route: 048
     Dates: start: 20090409
  5. PROPOXYPHENE NAPSYLATE W/ACETAMINOPHENE [Concomitant]
     Dosage: 100-650
     Route: 048
     Dates: start: 20090410
  6. METOCLOPRAMIDE [Concomitant]
     Dosage: 10 MG, UNK
     Route: 048
     Dates: start: 20090417

REACTIONS (6)
  - Cholecystitis [None]
  - Injury [None]
  - Pain [None]
  - Emotional distress [None]
  - Anxiety [None]
  - Psychological trauma [None]
